FAERS Safety Report 19084481 (Version 1)
Quarter: 2021Q2

REPORT INFORMATION
  Report Type: Spontaneous
  Country: US (occurrence: US)
  Receive Date: 20210401
  Receipt Date: 20210401
  Transmission Date: 20210717
  Serious: Yes (Life-Threatening)
  Sender: FDA-Public Use
  Company Number: US-BAYER-2021-113178

PATIENT
  Sex: Female

DRUGS (1)
  1. MILK OF MAGNESIA CHERRY [Suspect]
     Active Substance: MAGNESIUM HYDROXIDE
     Dosage: 30 ML

REACTIONS (3)
  - Heart rate increased [Unknown]
  - Blood potassium decreased [Unknown]
  - Palpitations [Unknown]
